FAERS Safety Report 6200245-4 (Version None)
Quarter: 2009Q2

REPORT INFORMATION
  Report Type: 
  Country: None (occurrence: None)
  Receive Date: 20090522
  Receipt Date: 20090514
  Transmission Date: 20091009
  Serious: Yes (Other)
  Sender: FDA-Public Use
  Company Number: CH-JNJFOC-20090502989

PATIENT
  Age: 10 Year
  Sex: Male

DRUGS (3)
  1. RISPERDAL [Suspect]
     Indication: AUTISM SPECTRUM DISORDER
     Route: 048
  2. LEVOMEPROMAZIN [Suspect]
     Route: 048
  3. LEVOMEPROMAZIN [Suspect]
     Indication: AUTISM SPECTRUM DISORDER
     Route: 048

REACTIONS (1)
  - PANCYTOPENIA [None]
